FAERS Safety Report 13155730 (Version 1)
Quarter: 2017Q1

REPORT INFORMATION
  Report Type: Spontaneous
  Country: US (occurrence: US)
  Receive Date: 20170126
  Receipt Date: 20170126
  Transmission Date: 20170428
  Serious: No
  Sender: FDA-Public Use
  Company Number: US-ROCHE-1194464

PATIENT
  Sex: Female

DRUGS (4)
  1. VALIUM [Suspect]
     Active Substance: DIAZEPAM
     Route: 065
  2. VALIUM [Suspect]
     Active Substance: DIAZEPAM
     Indication: PANIC ATTACK
     Route: 048
     Dates: start: 20121125
  3. CELEXA [Concomitant]
     Active Substance: CITALOPRAM HYDROBROMIDE
     Route: 065
  4. ATIVAN [Concomitant]
     Active Substance: LORAZEPAM
     Indication: PANIC ATTACK
     Route: 048

REACTIONS (14)
  - Treatment noncompliance [Not Recovered/Not Resolved]
  - Reaction to azo-dyes [Not Recovered/Not Resolved]
  - Product quality issue [Unknown]
  - Dyspnoea [Unknown]
  - Product physical issue [Unknown]
  - Depression [Not Recovered/Not Resolved]
  - Withdrawal syndrome [Not Recovered/Not Resolved]
  - Unevaluable event [Unknown]
  - Poor quality drug administered [Not Recovered/Not Resolved]
  - Tachycardia [Not Recovered/Not Resolved]
  - Nervous system disorder [Not Recovered/Not Resolved]
  - Heart rate increased [Unknown]
  - Drug withdrawal syndrome [Unknown]
  - Anxiety [Unknown]
